FAERS Safety Report 5014427-0 (Version None)
Quarter: 2006Q2

REPORT INFORMATION
  Report Type: 
  Country: None (occurrence: None)
  Receive Date: 20060531
  Receipt Date: 20040122
  Transmission Date: 20061013
  Serious: Yes (Death)
  Sender: FDA-Public Use
  Company Number: CA-BOEHRINGER INGELHEIM PHARMACEUTICALS, INC.-2005-CN-00258CN

PATIENT
  Sex: Female

DRUGS (8)
  1. ATROVENT [Suspect]
     Indication: BRONCHIECTASIS
     Route: 055
  2. OXYGEN [Concomitant]
     Indication: BRONCHIECTASIS
  3. OXEZE [Concomitant]
     Indication: BRONCHIECTASIS
  4. PULMICORT [Concomitant]
     Indication: BRONCHIECTASIS
  5. ANTI-INFLAMMATORIES [Concomitant]
     Indication: BRONCHIECTASIS
  6. CIPROFLOXACIN [Concomitant]
     Indication: BRONCHIECTASIS
  7. ANTIBIOTICS [Concomitant]
     Indication: BRONCHIECTASIS
  8. VACCINES [Concomitant]
     Indication: INFLUENZA

REACTIONS (1)
  - DEATH [None]
